FAERS Safety Report 7056968-0 (Version None)
Quarter: 2010Q4

REPORT INFORMATION
  Report Type: 
  Country: None (occurrence: None)
  Receive Date: 20101022
  Receipt Date: 20101012
  Transmission Date: 20110411
  Serious: Yes (Hospitalization)
  Sender: FDA-Public Use
  Company Number: FR-JNJFOC-20100902261

PATIENT
  Age: 85 Year
  Sex: Female
  Weight: 56 kg

DRUGS (19)
  1. REMICADE [Suspect]
     Indication: CHONDROCALCINOSIS
     Route: 042
  2. REMICADE [Suspect]
     Route: 042
  3. REMICADE [Suspect]
     Dosage: 4TH INFUSION
     Route: 042
  4. REMICADE [Suspect]
     Route: 042
  5. REMICADE [Suspect]
     Indication: RHEUMATOID ARTHRITIS
     Route: 042
  6. REMICADE [Suspect]
     Route: 042
  7. REMICADE [Suspect]
     Dosage: 4TH INFUSION
     Route: 042
  8. REMICADE [Suspect]
     Route: 042
  9. METHOTREXATE [Suspect]
     Indication: PRODUCT USED FOR UNKNOWN INDICATION
  10. CORTANCYL [Suspect]
     Indication: PRODUCT USED FOR UNKNOWN INDICATION
  11. CORTANCYL [Suspect]
  12. SPECIAFOLDINE [Concomitant]
  13. ACETAMINOPHEN [Concomitant]
  14. AERIUS [Concomitant]
  15. CRESTOR [Concomitant]
  16. OROCAL D3 [Concomitant]
  17. ACTONEL [Concomitant]
  18. XANAX [Concomitant]
     Dosage: DOSE 0.5, 0.5, 1
  19. ACUPAN [Concomitant]
     Dosage: DOSE 1 PHIAL  4 PRN

REACTIONS (2)
  - CHOLECYSTITIS INFECTIVE [None]
  - LISTERIOSIS [None]
